FAERS Safety Report 15301061 (Version 1)
Quarter: 2020Q3

REPORT INFORMATION
  Report Type: Report from Study
  Country: US (occurrence: US)
  Receive Date: 20180821
  Receipt Date: 20180821
  Transmission Date: 20201105
  Serious: Yes (Hospitalization)
  Sender: FDA-Public Use
  Company Number: US-JNJFOC-20170108297

PATIENT
  Age: 44 Year
  Sex: Male
  Weight: 88 kg

DRUGS (23)
  1. LISINOPRIL. [Concomitant]
     Active Substance: LISINOPRIL
     Indication: HYPERTENSION
     Dosage: AT BED TIME
     Route: 048
     Dates: start: 20160702
  2. GABAPENTIN. [Concomitant]
     Active Substance: GABAPENTIN
     Indication: PAIN
     Route: 061
     Dates: start: 20160701
  3. CARISOPRODOL. [Concomitant]
     Active Substance: CARISOPRODOL
     Indication: NECK PAIN
     Route: 048
     Dates: start: 20160805
  4. LOTRISONE [Concomitant]
     Active Substance: BETAMETHASONE DIPROPIONATE\CLOTRIMAZOLE
     Indication: SKIN IRRITATION
     Route: 061
     Dates: start: 20160929
  5. USTEKINUMAB [Suspect]
     Active Substance: USTEKINUMAB
     Route: 058
  6. UCERIS [Concomitant]
     Active Substance: BUDESONIDE
     Indication: COLITIS ULCERATIVE
     Route: 048
     Dates: start: 201603
  7. ONDANSETRON HCL [Concomitant]
     Active Substance: ONDANSETRON HYDROCHLORIDE
     Indication: NAUSEA
     Route: 048
     Dates: start: 20160603
  8. BYSTOLIC [Concomitant]
     Active Substance: NEBIVOLOL HYDROCHLORIDE
     Indication: HYPERTENSION
     Route: 048
     Dates: start: 2014
  9. KAOPECTATE REGULAR STRENGTH CHERRY FLAVOR [Concomitant]
     Active Substance: BISMUTH SUBSALICYLATE
     Indication: COLITIS ULCERATIVE
     Route: 048
     Dates: start: 2015
  10. USTEKINUMAB [Suspect]
     Active Substance: USTEKINUMAB
     Indication: COLITIS ULCERATIVE
     Route: 058
     Dates: start: 20161006
  11. TRAMADOL HCL [Concomitant]
     Active Substance: TRAMADOL HYDROCHLORIDE
     Indication: COLITIS ULCERATIVE
     Route: 048
     Dates: start: 20160524
  12. FLURBIPROFEN. [Concomitant]
     Active Substance: FLURBIPROFEN
     Indication: PAIN
     Route: 061
     Dates: start: 20160701
  13. SUCRALFATE. [Concomitant]
     Active Substance: SUCRALFATE
     Indication: NAUSEA
     Dosage: BEFORE MEAL
     Route: 048
     Dates: start: 20160705
  14. FISH OIL [Concomitant]
     Active Substance: FISH OIL
     Indication: NUTRITIONAL SUPPLEMENTATION
     Route: 048
     Dates: start: 20160809
  15. ZYRTEC [Concomitant]
     Active Substance: CETIRIZINE HYDROCHLORIDE
     Indication: SEASONAL ALLERGY
     Route: 048
     Dates: start: 20160413
  16. BACLOFEN. [Concomitant]
     Active Substance: BACLOFEN
     Indication: PAIN
     Route: 061
     Dates: start: 20160701
  17. KETOCAINE [Concomitant]
     Indication: PAIN
     Route: 061
     Dates: start: 20160701
  18. LIBRAX [Concomitant]
     Active Substance: CHLORDIAZEPOXIDE HYDROCHLORIDE\CLIDINIUM BROMIDE
     Indication: COLITIS ULCERATIVE
     Dosage: 5?2.5 MG
     Route: 048
     Dates: start: 20160804
  19. HYDROCODONE [Concomitant]
     Active Substance: HYDROCODONE
     Indication: PAIN
     Route: 048
     Dates: start: 20160516
  20. CYCLOBENZAPRINE. [Concomitant]
     Active Substance: CYCLOBENZAPRINE
     Indication: PAIN
     Route: 061
     Dates: start: 20160701
  21. FOLIC ACID. [Concomitant]
     Active Substance: FOLIC ACID
     Indication: COLITIS ULCERATIVE
     Route: 048
     Dates: start: 20160421
  22. HYDROCORTISONE VALERATE. [Concomitant]
     Active Substance: HYDROCORTISONE VALERATE
     Indication: DERMATITIS
     Route: 065
     Dates: start: 20160603
  23. LIDOCAINE. [Concomitant]
     Active Substance: LIDOCAINE
     Indication: PAIN
     Route: 061
     Dates: start: 20160701

REACTIONS (1)
  - Gastroenteritis [Recovered/Resolved]

NARRATIVE: CASE EVENT DATE: 20170101
